FAERS Safety Report 16359236 (Version 1)
Quarter: 2019Q2

REPORT INFORMATION
  Report Type: Spontaneous
  Country: US (occurrence: US)
  Receive Date: 20190527
  Receipt Date: 20190527
  Transmission Date: 20190711
  Serious: No
  Sender: FDA-Public Use
  Company Number: US-SA-2019SA140382

PATIENT
  Age: 34 Year
  Sex: Female

DRUGS (2)
  1. ADMELOG [Suspect]
     Active Substance: INSULIN LISPRO
     Indication: GESTATIONAL DIABETES
     Dosage: 8 U, BID
     Route: 065
     Dates: start: 201812
  2. ADMELOG [Suspect]
     Active Substance: INSULIN LISPRO
     Dosage: 12 U, HS
     Route: 065
     Dates: start: 201812

REACTIONS (3)
  - Exposure during pregnancy [Unknown]
  - Product contamination physical [Unknown]
  - Product dose omission [Unknown]
